FAERS Safety Report 13653330 (Version 1)
Quarter: 2017Q2

REPORT INFORMATION
  Report Type: Spontaneous
  Country: US (occurrence: US)
  Receive Date: 20170614
  Receipt Date: 20170614
  Transmission Date: 20170830
  Serious: No
  Sender: FDA-Public Use
  Company Number: US-ROCHE-1329332

PATIENT
  Sex: Male

DRUGS (1)
  1. XELODA [Suspect]
     Active Substance: CAPECITABINE
     Indication: PRODUCT USED FOR UNKNOWN INDICATION
     Dosage: 3 TABLETS BID, 14 DAYS ON FOLLOWED BY 7 DAYS OFF
     Route: 065
     Dates: start: 20131024, end: 20140102

REACTIONS (4)
  - Eye irritation [Unknown]
  - Skin exfoliation [Unknown]
  - Pain in extremity [Unknown]
  - Lacrimation increased [Unknown]
